FAERS Safety Report 9005164 (Version 1)
Quarter: 2013Q1

REPORT INFORMATION
  Report Type: Spontaneous
  Country: US (occurrence: US)
  Receive Date: 20130109
  Receipt Date: 20130109
  Transmission Date: 20140127
  Serious: Yes (Hospitalization)
  Sender: FDA-Public Use
  Company Number: US-BAYER-2013-001088

PATIENT
  Age: 16 Year
  Sex: Female
  Weight: 113.38 kg

DRUGS (2)
  1. BEYAZ [Suspect]
     Indication: POLYCYSTIC OVARIES
     Dosage: UNK
     Dates: start: 201102, end: 20110329
  2. GIANVI [Suspect]
     Indication: POLYCYSTIC OVARIES
     Dosage: UNK
     Dates: start: 20110329, end: 201105

REACTIONS (3)
  - Cholecystectomy [None]
  - Cholecystitis chronic [None]
  - Off label use [None]
